FAERS Safety Report 5968486-9 (Version None)
Quarter: 2008Q4

REPORT INFORMATION
  Report Type: 
  Country: None (occurrence: None)
  Receive Date: 20081121
  Receipt Date: 20081121
  Transmission Date: 20090506
  Serious: Yes (Death)
  Sender: FDA-Public Use
  Company Number: None

PATIENT
  Age: 79 Year
  Sex: Male
  Weight: 106.6 kg

DRUGS (2)
  1. LOVENOX [Suspect]
     Indication: ATRIAL FIBRILLATION
     Dosage: 100 MG Q12 HRS SQ
     Route: 058
     Dates: start: 20081113, end: 20081119
  2. WARFARIN SODIUM [Suspect]
     Dosage: 7.5 MG OR 5 MG DAILY PO
     Route: 048

REACTIONS (6)
  - APNOEIC ATTACK [None]
  - COMA [None]
  - HAEMORRHAGE INTRACRANIAL [None]
  - INTERNATIONAL NORMALISED RATIO INCREASED [None]
  - RENAL IMPAIRMENT [None]
  - UNRESPONSIVE TO STIMULI [None]
